FAERS Safety Report 8018512-0 (Version None)
Quarter: 2012Q2

REPORT INFORMATION
  Report Type: 
  Country: None (occurrence: None)
  Receive Date: 20120103
  Receipt Date: 20111219
  Transmission Date: 20120825
  Serious: Yes (Death)
  Sender: FDA-Public Use
  Company Number: US-PFIZER INC-2011311812

PATIENT
  Age: 26 Year
  Sex: Male

DRUGS (5)
  1. HEROIN [Suspect]
  2. ETHANOL [Suspect]
  3. MORPHINE SULFATE [Suspect]
  4. CODEINE [Suspect]
  5. OXYCODONE HCL [Suspect]
     Route: 048

REACTIONS (3)
  - CARDIAC ARREST [None]
  - RESPIRATORY ARREST [None]
  - DRUG ABUSE [None]
